FAERS Safety Report 8320024-1 (Version None)
Quarter: 2012Q2

REPORT INFORMATION
  Report Type: 
  Country: None (occurrence: None)
  Receive Date: 20120427
  Receipt Date: 20120321
  Transmission Date: 20120825
  Serious: Yes (Hospitalization, Other)
  Sender: FDA-Public Use
  Company Number: IT-BAXTER-2012BAX000305

PATIENT
  Sex: Female
  Weight: 51.5 kg

DRUGS (4)
  1. DOXORUBICIN HCL [Suspect]
     Indication: B-CELL LYMPHOMA
     Route: 042
     Dates: start: 20120126
  2. CYCLOPHOSPHAMIDE [Suspect]
     Indication: B-CELL LYMPHOMA
     Route: 042
     Dates: start: 20120126
  3. PREDNISOLONE [Suspect]
     Indication: B-CELL LYMPHOMA
     Route: 048
     Dates: start: 20120126
  4. VINCRISTINE [Suspect]
     Indication: B-CELL LYMPHOMA
     Route: 042
     Dates: start: 20120126

REACTIONS (2)
  - PNEUMONIA [None]
  - FEBRILE NEUTROPENIA [None]
